FAERS Safety Report 21192641 (Version 1)
Quarter: 2022Q3

REPORT INFORMATION
  Report Type: Spontaneous
  Country: BE (occurrence: BE)
  Receive Date: 20220810
  Receipt Date: 20220810
  Transmission Date: 20221026
  Serious: Yes (Life-Threatening)
  Sender: FDA-Public Use
  Company Number: BE-DAIICHI SANKYO EUROPE GMBH-DSE-2022-119125

PATIENT
  Age: 71 Year
  Sex: Male
  Weight: 90 kg

DRUGS (2)
  1. BEMPEDOIC ACID [Suspect]
     Active Substance: BEMPEDOIC ACID
     Indication: Hypercholesterolaemia
     Dosage: 180 MG, QD
     Route: 065
     Dates: start: 20220427
  2. PHENPROCOUMON [Concomitant]
     Active Substance: PHENPROCOUMON
     Indication: Pulmonary embolism
     Dosage: 3 MG
     Route: 048
     Dates: start: 2006

REACTIONS (1)
  - International normalised ratio increased [Recovering/Resolving]

NARRATIVE: CASE EVENT DATE: 20220527
